FAERS Safety Report 12365631 (Version 2)
Quarter: 2016Q3

REPORT INFORMATION
  Report Type: Spontaneous
  Country: US (occurrence: US)
  Receive Date: 20160513
  Receipt Date: 20160701
  Transmission Date: 20161109
  Serious: Yes (Hospitalization, Other)
  Sender: FDA-Public Use
  Company Number: US-GLAXOSMITHKLINE-US2016GSK064773

PATIENT
  Age: 65 Year
  Sex: Female

DRUGS (10)
  1. VENTOLIN HFA [Suspect]
     Active Substance: ALBUTEROL SULFATE
     Indication: CHRONIC OBSTRUCTIVE PULMONARY DISEASE
     Dosage: UNK
     Dates: start: 20130621
  2. ADVAIR DISKUS [Suspect]
     Active Substance: FLUTICASONE PROPIONATE\SALMETEROL XINAFOATE
     Indication: CHRONIC OBSTRUCTIVE PULMONARY DISEASE
     Dosage: 1 PUFF(S), BID
     Route: 055
  3. ALBUTEROL + IPRATROPIUM [Concomitant]
  4. NASONEX [Concomitant]
     Active Substance: MOMETASONE FUROATE
  5. LOVAZA [Suspect]
     Active Substance: OMEGA-3-ACID ETHYL ESTERS
     Indication: BLOOD CHOLESTEROL ABNORMAL
     Dosage: UNK
     Dates: start: 201009
  6. OXYGEN. [Concomitant]
     Active Substance: OXYGEN
  7. LORATIDINE [Concomitant]
     Active Substance: LORATADINE
  8. ADVAIR DISKUS [Suspect]
     Active Substance: FLUTICASONE PROPIONATE\SALMETEROL XINAFOATE
     Dosage: 500/50 MCG
     Dates: start: 201602
  9. ASPIRIN. [Concomitant]
     Active Substance: ASPIRIN
  10. LEXAPRO [Concomitant]
     Active Substance: ESCITALOPRAM OXALATE

REACTIONS (10)
  - Pneumonia [Recovered/Resolved]
  - Dyspnoea [Recovered/Resolved]
  - Productive cough [Recovered/Resolved]
  - Rhinovirus infection [Recovered/Resolved]
  - Cough [Recovered/Resolved]
  - Increased upper airway secretion [Recovered/Resolved]
  - Emergency care examination [Unknown]
  - Nasopharyngitis [Unknown]
  - Oxygen saturation decreased [Recovering/Resolving]
  - Sinus congestion [Recovered/Resolved]

NARRATIVE: CASE EVENT DATE: 201601
